FAERS Safety Report 8131159-0 (Version None)
Quarter: 2012Q1

REPORT INFORMATION
  Report Type: 
  Country: None (occurrence: None)
  Receive Date: 20120213
  Receipt Date: 20120208
  Transmission Date: 20120608
  Serious: Yes (Disabling, Other)
  Sender: FDA-Public Use
  Company Number: US-SANOFI-AVENTIS-2012SA008299

PATIENT
  Age: 75 Year
  Sex: Female

DRUGS (3)
  1. HUMALOG [Concomitant]
  2. LANTUS [Suspect]
     Dosage: 40 UNITS IN THE MORNING, 25 UNITS IN THE EVENING
     Route: 058
  3. SOLOSTAR [Suspect]

REACTIONS (3)
  - VERTIGO [None]
  - BLINDNESS UNILATERAL [None]
  - FOOT AMPUTATION [None]
